FAERS Safety Report 4953233-X (Version None)
Quarter: 2006Q1

REPORT INFORMATION
  Report Type: 
  Country: None (occurrence: None)
  Receive Date: 20060324
  Receipt Date: 20050422
  Transmission Date: 20060701
  Serious: Yes (Life-Threatening, Hospitalization, Disabling)
  Sender: FDA-Public Use
  Company Number: US-MERCK-0504USA04206

PATIENT
  Age: 52 Year
  Sex: Male

DRUGS (4)
  1. VIOXX [Suspect]
     Route: 048
     Dates: start: 20000301
  2. GLUCOPHAGE [Concomitant]
     Indication: DIABETES MELLITUS NON-INSULIN-DEPENDENT
     Route: 048
  3. INDOCIN [Concomitant]
     Route: 048
  4. TENORMIN [Concomitant]
     Route: 048

REACTIONS (20)
  - ABDOMINAL PAIN UPPER [None]
  - ACUTE MYOCARDIAL INFARCTION [None]
  - BLOOD PRESSURE INCREASED [None]
  - CALCULUS URETERIC [None]
  - CAROTID ARTERY ATHEROMA [None]
  - CHEST PAIN [None]
  - CORONARY ARTERY DISEASE [None]
  - DISORIENTATION [None]
  - DIZZINESS [None]
  - DUODENITIS [None]
  - DYSPNOEA [None]
  - GASTRIC ULCER [None]
  - GASTROOESOPHAGEAL REFLUX DISEASE [None]
  - HEART RATE IRREGULAR [None]
  - HEPATIC STEATOSIS [None]
  - HIATUS HERNIA [None]
  - HYPERLIPIDAEMIA [None]
  - RENAL COLIC [None]
  - SLEEP APNOEA SYNDROME [None]
  - SWELLING [None]
